FAERS Safety Report 5991145-3 (Version None)
Quarter: 2008Q4

REPORT INFORMATION
  Report Type: 
  Country: None (occurrence: None)
  Receive Date: 20081211
  Receipt Date: 20081204
  Transmission Date: 20090506
  Serious: Yes (Hospitalization)
  Sender: FDA-Public Use
  Company Number: US-BRISTOL-MYERS SQUIBB COMPANY-14437115

PATIENT
  Age: 77 Year
  Sex: Female

DRUGS (3)
  1. CARBIDOPA + LEVODOPA [Suspect]
     Route: 048
  2. TIZANIDINE HCL [Suspect]
  3. LEVODOPA + CARBIDOPA + ENTACAPONE [Suspect]

REACTIONS (1)
  - ENCEPHALOPATHY [None]
